FAERS Safety Report 9928264 (Version 2)
Quarter: 2014Q1

REPORT INFORMATION
  Report Type: Spontaneous
  Country: BR (occurrence: BR)
  Receive Date: 20140227
  Receipt Date: 20140227
  Transmission Date: 20141002
  Serious: Yes (Other)
  Sender: FDA-Public Use
  Company Number: BR-PFIZER INC-2014045716

PATIENT
  Age: 53 Year
  Sex: Female
  Weight: 58 kg

DRUGS (3)
  1. XALATAN [Suspect]
     Indication: OPEN ANGLE GLAUCOMA
     Dosage: 1DROP IN EACH EYE, 1X/DAY
     Route: 047
     Dates: start: 20130204
  2. XALACOM [Suspect]
     Indication: OPEN ANGLE GLAUCOMA
     Dosage: 1 GTT EACH EYE, 1X/DAY
     Route: 047
     Dates: start: 20100616
  3. DURSOLOLOL [Concomitant]
     Indication: OPEN ANGLE GLAUCOMA

REACTIONS (3)
  - Intervertebral disc disorder [Recovering/Resolving]
  - Osteoarthritis [Recovering/Resolving]
  - Intentional drug misuse [Unknown]
